FAERS Safety Report 7780419-1 (Version None)
Quarter: 2011Q3

REPORT INFORMATION
  Report Type: 
  Country: None (occurrence: None)
  Receive Date: 20110927
  Receipt Date: 20110919
  Transmission Date: 20111222
  Serious: Yes (Life-Threatening, Hospitalization, Disabling, Other)
  Sender: FDA-Public Use
  Company Number: US-BAYER-201026161NA

PATIENT
  Age: 43 Year
  Sex: Female
  Weight: 104 kg

DRUGS (10)
  1. LAMICTAL [Concomitant]
     Dosage: 25 MG, BID
     Route: 048
     Dates: start: 20061113
  2. ABILIFY [Concomitant]
     Dosage: UNK
     Dates: start: 20060101
  3. NAPROXEN [Concomitant]
     Indication: PAIN
     Dosage: 550 MG, UNK
     Route: 048
     Dates: start: 20060705
  4. SEROQUEL [Concomitant]
     Indication: BIPOLAR DISORDER
     Dosage: 25 MG, BID
     Dates: start: 20060301
  5. ALBUTEROL INHALER [Concomitant]
     Indication: ASTHMA
     Dosage: UNK
     Route: 055
     Dates: start: 20060601
  6. NEXIUM [Concomitant]
     Indication: GASTROOESOPHAGEAL REFLUX DISEASE
     Dosage: 1 NOT APPL., QD
     Route: 048
     Dates: start: 20061113
  7. ADVAIR DISKUS 100/50 [Concomitant]
     Indication: ASTHMA
  8. LITHIUM [Concomitant]
     Dosage: UNK UNK, BID
     Dates: start: 20061113
  9. AFRIN ALLERGY [Concomitant]
     Dosage: UNK
     Route: 045
     Dates: start: 20060701
  10. YAZ [Suspect]
     Indication: GENITAL HAEMORRHAGE
     Route: 048
     Dates: start: 20061212

REACTIONS (11)
  - HEMIPARESIS [None]
  - PERIPHERAL ISCHAEMIA [None]
  - DIZZINESS [None]
  - HEADACHE [None]
  - CEREBROVASCULAR ACCIDENT [None]
  - HAND AMPUTATION [None]
  - MUSCULAR WEAKNESS [None]
  - PAIN IN EXTREMITY [None]
  - RESPIRATORY FAILURE [None]
  - ARTERIAL THROMBOSIS LIMB [None]
  - PULSE ABSENT [None]
